FAERS Safety Report 7358953-8 (Version None)
Quarter: 2011Q1

REPORT INFORMATION
  Report Type: 
  Country: None (occurrence: None)
  Receive Date: 20110317
  Receipt Date: 20110310
  Transmission Date: 20110831
  Serious: Yes (Other)
  Sender: FDA-Public Use
  Company Number: US-ELI_LILLY_AND_COMPANY-US201103004012

PATIENT
  Sex: Female

DRUGS (2)
  1. STRATTERA [Suspect]
     Indication: ATTENTION DEFICIT/HYPERACTIVITY DISORDER
     Dosage: 40 MG, UNK
     Dates: end: 20070529
  2. ZOLOFT [Concomitant]
     Indication: ANXIETY

REACTIONS (3)
  - EATING DISORDER [None]
  - CARDIOMYOPATHY [None]
  - WEIGHT GAIN POOR [None]
